FAERS Safety Report 9928195 (Version 1)
Quarter: 2014Q1

REPORT INFORMATION
  Report Type: Spontaneous
  Country: US (occurrence: None)
  Receive Date: 20140226
  Receipt Date: 20140226
  Transmission Date: 20141002
  Serious: Yes (Other)
  Sender: FDA-Public Use
  Company Number: None

PATIENT
  Age: 44 Year
  Sex: Female
  Weight: 79.38 kg

DRUGS (1)
  1. NEURAGEN [Suspect]
     Indication: NEURALGIA
     Dates: start: 20140222, end: 20140222

REACTIONS (5)
  - Erythema [None]
  - Swelling [None]
  - Blister [None]
  - Gait disturbance [None]
  - Chemical injury [None]
